FAERS Safety Report 24966206 (Version 16)
Quarter: 2025Q3

REPORT INFORMATION
  Report Type: Report from Study
  Country: CO (occurrence: CO)
  Receive Date: 20250213
  Receipt Date: 20250929
  Transmission Date: 20251021
  Serious: Yes (Hospitalization)
  Sender: TAKEDA
  Company Number: CO-TAKEDA-2024TUS130974

PATIENT
  Age: 15 Year
  Sex: Male
  Weight: 33 kg

DRUGS (1)
  1. HUMAN IMMUNOGLOBULIN G\HYALURONIDASE RECOMBINANT HUMAN [Suspect]
     Active Substance: HUMAN IMMUNOGLOBULIN G\HYALURONIDASE (HUMAN RECOMBINANT)
     Indication: Primary immunodeficiency syndrome
     Dosage: 10 GRAM, Q2WEEKS
     Dates: start: 20241227

REACTIONS (24)
  - Dehydration [Recovered/Resolved]
  - Diarrhoea [Recovered/Resolved]
  - Asthenia [Unknown]
  - Pain [Recovered/Resolved]
  - Pallor [Recovered/Resolved]
  - Dizziness [Recovered/Resolved]
  - Treatment noncompliance [Unknown]
  - Product use issue [Unknown]
  - Insurance issue [Unknown]
  - Injection site inflammation [Unknown]
  - Infusion related reaction [Recovering/Resolving]
  - Incorrect drug administration rate [Recovered/Resolved]
  - Aphthous ulcer [Unknown]
  - General physical health deterioration [Unknown]
  - Administration site pain [Recovered/Resolved]
  - Incorrect dose administered [Unknown]
  - Product prescribing error [Unknown]
  - Wrong technique in product usage process [Unknown]
  - Weight decreased [Unknown]
  - Product availability issue [Unknown]
  - Malaise [Unknown]
  - Skin burning sensation [Unknown]
  - Erythema [Unknown]
  - Catheter site discharge [Unknown]

NARRATIVE: CASE EVENT DATE: 20241227
